FAERS Safety Report 17605712 (Version 4)
Quarter: 2020Q3

REPORT INFORMATION
  Report Type: Spontaneous
  Country: US (occurrence: US)
  Receive Date: 20200331
  Receipt Date: 20200928
  Transmission Date: 20201102
  Serious: Yes (Hospitalization, Other)
  Sender: FDA-Public Use
  Company Number: US-JNJFOC-20200332346

PATIENT
  Age: 49 Year
  Sex: Female
  Weight: 80.36 kg

DRUGS (14)
  1. CLOBETASOL PROPIONATE. [Concomitant]
     Active Substance: CLOBETASOL PROPIONATE
     Indication: PSORIASIS
     Route: 061
  2. HUMIRA [Suspect]
     Active Substance: ADALIMUMAB
     Indication: PSORIATIC ARTHROPATHY
     Route: 058
     Dates: start: 20180421
  3. BACTRIM [Suspect]
     Active Substance: SULFAMETHOXAZOLE\TRIMETHOPRIM
     Indication: PRODUCT USED FOR UNKNOWN INDICATION
     Route: 065
  4. REMICADE [Suspect]
     Active Substance: INFLIXIMAB
     Indication: PRODUCT USED FOR UNKNOWN INDICATION
     Route: 042
  5. ALBUTEROL                          /00139501/ [Concomitant]
     Active Substance: ALBUTEROL
     Indication: ASTHMA
     Route: 065
  6. VITAMIN B COMPLEX                  /00003501/ [Concomitant]
     Active Substance: CALCIUM PANTOTHENATE\NIACINAMIDE\PYRIDOXINE HYDROCHLORIDE\RIBOFLAVIN\THIAMINE HYDROCHLORIDE
     Indication: NUTRITIONAL SUPPLEMENTATION
     Route: 065
  7. VITAMIN D3 [Concomitant]
     Active Substance: CHOLECALCIFEROL
     Indication: NUTRITIONAL SUPPLEMENTATION
     Route: 065
  8. VITAMIN K [Concomitant]
     Active Substance: PHYTONADIONE
     Indication: NUTRITIONAL SUPPLEMENTATION
     Route: 065
  9. LISINOPRIL. [Concomitant]
     Active Substance: LISINOPRIL
     Indication: HYPERTENSION
     Route: 065
  10. SYMBICORT [Concomitant]
     Active Substance: BUDESONIDE\FORMOTEROL FUMARATE DIHYDRATE
     Indication: ASTHMA
     Route: 065
  11. VITAMIN E                          /00110501/ [Concomitant]
     Active Substance: TOCOPHEROL
     Indication: NUTRITIONAL SUPPLEMENTATION
     Route: 065
  12. VALACYCLOVIR [Concomitant]
     Active Substance: VALACYCLOVIR HYDROCHLORIDE
     Indication: ORAL HERPES
     Route: 065
  13. VITAMIN C [Concomitant]
     Active Substance: ASCORBIC ACID
     Indication: NUTRITIONAL SUPPLEMENTATION
     Route: 065
  14. CLINDAMYCIN PHOSPHATE. [Concomitant]
     Active Substance: CLINDAMYCIN PHOSPHATE
     Indication: PSORIASIS
     Route: 061

REACTIONS (22)
  - Tympanic membrane perforation [Recovered/Resolved]
  - Autoimmune hepatitis [Recovered/Resolved]
  - Drug hypersensitivity [Recovered/Resolved]
  - Gastrooesophageal reflux disease [Recovered/Resolved]
  - Vomiting [Recovered/Resolved]
  - Diarrhoea [Recovered/Resolved]
  - Pharyngitis [Recovered/Resolved]
  - Cutaneous lupus erythematosus [Recovered/Resolved]
  - Psoriatic arthropathy [Not Recovered/Not Resolved]
  - Impaired gastric emptying [Recovering/Resolving]
  - Food allergy [Not Recovered/Not Resolved]
  - Drug hypersensitivity [Unknown]
  - Ear infection [Recovered/Resolved]
  - Infusion related reaction [Recovered/Resolved]
  - Vitamin D abnormal [Recovered/Resolved]
  - Immunodeficiency [Recovering/Resolving]
  - Nausea [Not Recovered/Not Resolved]
  - Sinus disorder [Recovered/Resolved]
  - Erythema [Recovered/Resolved]
  - Hypertension [Recovered/Resolved]
  - Weight decreased [Not Recovered/Not Resolved]
  - Glucose tolerance impaired [Recovered/Resolved]

NARRATIVE: CASE EVENT DATE: 2009
